FAERS Safety Report 8439664-4 (Version None)
Quarter: 2012Q2

REPORT INFORMATION
  Report Type: 
  Country: None (occurrence: None)
  Receive Date: 20120608
  Receipt Date: 20120524
  Transmission Date: 20120825
  Serious: Yes (Life-Threatening, Hospitalization)
  Sender: FDA-Public Use
  Company Number: 2011MPI00123

PATIENT
  Age: 41 Year
  Sex: Male

DRUGS (7)
  1. PANTOPRAZOLE [Concomitant]
  2. PRAVASTATIN [Concomitant]
  3. BRENTUXIMAB VEDOTIN (BRENTUXIMAB VEDOTIN) INJECTION [Suspect]
     Indication: HODGKIN'S DISEASE
     Dosage: 180 MG, INTRAVENOUS
     Route: 042
     Dates: start: 20110518
  4. PREDNISOLONE ACETATE [Concomitant]
  5. HYDROCHLOROTHIAZIDE [Concomitant]
  6. URSODIOL [Concomitant]
  7. TORSEMIDE [Concomitant]

REACTIONS (9)
  - SEPTIC SHOCK [None]
  - TACHYARRHYTHMIA [None]
  - SYSTEMIC INFLAMMATORY RESPONSE SYNDROME [None]
  - MYOPATHY [None]
  - OPPORTUNISTIC INFECTION [None]
  - RENAL FAILURE [None]
  - BLOOD LACTATE DEHYDROGENASE INCREASED [None]
  - DIARRHOEA [None]
  - RESPIRATORY FAILURE [None]
